FAERS Safety Report 21707554 (Version 1)
Quarter: 2022Q4

REPORT INFORMATION
  Report Type: Spontaneous
  Country: CN (occurrence: CN)
  Receive Date: 20221209
  Receipt Date: 20221209
  Transmission Date: 20230112
  Serious: Yes (Hospitalization, Other)
  Sender: FDA-Public Use
  Company Number: CN-PFIZER INC-PV202200119008

PATIENT
  Age: 3 Year
  Sex: Male
  Weight: 14.5 kg

DRUGS (10)
  1. CYTARABINE [Suspect]
     Active Substance: CYTARABINE
     Indication: Chemotherapy
     Dosage: 0.045 G, 1X/DAY
     Route: 041
     Dates: start: 20221101, end: 20221104
  2. CYTARABINE [Suspect]
     Active Substance: CYTARABINE
     Dosage: 0.03 G, 1X/DAY
     Route: 037
     Dates: start: 20221101, end: 20221101
  3. METHOTREXATE [Suspect]
     Active Substance: METHOTREXATE
     Indication: Chemotherapy
     Dosage: 0.012 G, 1X/DAY
     Route: 037
     Dates: start: 20221101, end: 20221101
  4. CILASTATIN SODIUM\IMIPENEM [Suspect]
     Active Substance: CILASTATIN SODIUM\IMIPENEM
     Indication: Anti-infective therapy
     Dosage: 0.5 G, 3X/DAY
     Route: 041
     Dates: start: 20221113, end: 20221122
  5. SULFAMETHOXAZOLE [Suspect]
     Active Substance: SULFAMETHOXAZOLE
     Indication: Anti-infective therapy
     Dosage: 0.24 G, 2X/DAY
     Route: 048
     Dates: start: 20221108, end: 20221116
  6. ONDANSETRON HYDROCHLORIDE [Concomitant]
     Active Substance: ONDANSETRON HYDROCHLORIDE
     Indication: Prophylaxis of nausea and vomiting
     Dosage: 3 MG, 1X/DAY
     Route: 041
     Dates: start: 20221101, end: 20221104
  7. DEXAMETHASONE SODIUM PHOSPHATE [Concomitant]
     Active Substance: DEXAMETHASONE SODIUM PHOSPHATE
     Indication: Antiallergic therapy
     Dosage: 2.5 MG, 1X/DAY
     Route: 037
     Dates: start: 20221101, end: 20221101
  8. DEXTROSE [Concomitant]
     Active Substance: DEXTROSE
     Indication: Vehicle solution use
     Dosage: 50 ML, 1X/DAY (5% GLUCOSE INJECTION 50ML QD VD )
     Route: 041
     Dates: start: 20221101, end: 20221104
  9. SODIUM CHLORIDE [Concomitant]
     Active Substance: SODIUM CHLORIDE
     Indication: Vehicle solution use
     Dosage: 1.5 ML, 1X/DAY
     Route: 037
     Dates: start: 20221101, end: 20221101
  10. ACYCLOVIR [Concomitant]
     Active Substance: ACYCLOVIR
     Indication: Antiviral treatment
     Dosage: 0.2 G, 2X/DAY
     Route: 041
     Dates: start: 20221108, end: 20221116

REACTIONS (2)
  - Myelosuppression [Recovering/Resolving]
  - Pyrexia [Unknown]

NARRATIVE: CASE EVENT DATE: 20221115
